FAERS Safety Report 10344037 (Version 1)
Quarter: 2014Q3

REPORT INFORMATION
  Report Type: Spontaneous
  Country: US (occurrence: None)
  Receive Date: 20140724
  Receipt Date: 20140724
  Transmission Date: 20150326
  Serious: Yes (Hospitalization)
  Sender: FDA-Public Use
  Company Number: None

PATIENT
  Age: 73 Year
  Sex: Female
  Weight: 71.22 kg

DRUGS (15)
  1. CALCIUM [Concomitant]
     Active Substance: CALCIUM
  2. CHONDROITIN [Concomitant]
     Active Substance: CHONDROITIN SULFATE (CHICKEN)
  3. ASPIRIN. [Concomitant]
     Active Substance: ASPIRIN
  4. D-3 [Concomitant]
     Active Substance: CHOLECALCIFEROL
  5. VITAMIN E [Concomitant]
     Active Substance: .ALPHA.-TOCOPHEROL
  6. FISH OIL [Concomitant]
     Active Substance: FISH OIL
  7. MAGNESIUM [Concomitant]
     Active Substance: MAGNESIUM
  8. C [Concomitant]
  9. FIBER [Concomitant]
     Active Substance: PSYLLIUM HUSK
  10. POTASSIUM [Concomitant]
     Active Substance: POTASSIUM
  11. HYDROXYCHLOROQUINE [Suspect]
     Active Substance: HYDROXYCHLOROQUINE
     Indication: ARTHRITIS
     Route: 048
     Dates: start: 20140512, end: 20140602
  12. B-6 [Concomitant]
  13. VITAMIN B12 [Concomitant]
     Active Substance: CYANOCOBALAMIN
  14. FLAXSEED [Concomitant]
     Active Substance: FLAX SEED
  15. GLUCOSAMINE [Concomitant]
     Active Substance: GLUCOSAMINE

REACTIONS (2)
  - Dermatitis contact [None]
  - Palpitations [None]

NARRATIVE: CASE EVENT DATE: 20140531
